FAERS Safety Report 15486004 (Version 1)
Quarter: 2018Q4

REPORT INFORMATION
  Report Type: Report from Study
  Country: None (occurrence: RO)
  Receive Date: 20181011
  Receipt Date: 20181011
  Transmission Date: 20190205
  Serious: Yes (Hospitalization, Other)
  Sender: FDA-Public Use
  Company Number: RO-ABBVIE-18S-135-2512971-00

PATIENT
  Age: 71 Year
  Sex: Male

DRUGS (4)
  1. VIEKIRAX [Suspect]
     Active Substance: OMBITASVIR\PARITAPREVIR\RITONAVIR
     Indication: HEPATITIS C
     Route: 048
     Dates: start: 20170719
  2. EXVIERA [Suspect]
     Active Substance: DASABUVIR
     Indication: HEPATITIS C
     Route: 048
     Dates: start: 20170719
  3. EXVIERA [Suspect]
     Active Substance: DASABUVIR
     Indication: HEPATIC CIRRHOSIS
  4. VIEKIRAX [Suspect]
     Active Substance: OMBITASVIR\PARITAPREVIR\RITONAVIR
     Indication: HEPATIC CIRRHOSIS

REACTIONS (11)
  - Epilepsy [Recovered/Resolved]
  - Confusional state [Recovered/Resolved]
  - Cerebral haematoma [Recovered/Resolved]
  - Hypokalaemia [Recovered/Resolved]
  - Hemiparesis [Recovered/Resolved]
  - Intraventricular haemorrhage [Recovered/Resolved]
  - Unevaluable event [Recovered/Resolved]
  - Sodium retention [Recovered/Resolved]
  - Thrombocytopenia [Not Recovered/Not Resolved]
  - Hypofibrinogenaemia [Recovered/Resolved]
  - Hyperbilirubinaemia [Recovered/Resolved]

NARRATIVE: CASE EVENT DATE: 20180814
